FAERS Safety Report 13698102 (Version 2)
Quarter: 2017Q3

REPORT INFORMATION
  Report Type: Spontaneous
  Country: US (occurrence: US)
  Receive Date: 20170628
  Receipt Date: 20170705
  Transmission Date: 20171127
  Serious: Yes (Disabling)
  Sender: FDA-Public Use
  Company Number: US-PFIZER INC-2017278953

PATIENT
  Age: 55 Year
  Sex: Female
  Weight: 91.61 kg

DRUGS (2)
  1. EFFEXOR XR [Suspect]
     Active Substance: VENLAFAXINE HYDROCHLORIDE
     Indication: AUTONOMIC NEUROPATHY
     Dosage: 75 MG, 1X/DAY(75MG ONE CAPSULE BY MOUTH ONCE A DAY FOR A WEEK)
     Route: 048
     Dates: start: 20170603, end: 20170608
  2. EFFEXOR XR [Suspect]
     Active Substance: VENLAFAXINE HYDROCHLORIDE
     Indication: FIBROMYALGIA
     Dosage: 75 MG, 2X/DAY
     Route: 048
     Dates: start: 20170609, end: 20170620

REACTIONS (4)
  - Pain [Recovered/Resolved]
  - Condition aggravated [Recovered/Resolved]
  - Bedridden [Unknown]
  - Product use in unapproved indication [Unknown]

NARRATIVE: CASE EVENT DATE: 201706
